FAERS Safety Report 4924661-3 (Version None)
Quarter: 2006Q1

REPORT INFORMATION
  Report Type: 
  Country: None (occurrence: None)
  Receive Date: 20060222
  Receipt Date: 20060206
  Transmission Date: 20060701
  Serious: Yes (Death)
  Sender: FDA-Public Use
  Company Number: 13450

PATIENT
  Sex: Female

DRUGS (4)
  1. CARBOPLATIN [Suspect]
     Indication: OVARIAN CANCER
     Dosage: 600 MG Q3W IV
     Route: 042
     Dates: start: 20051221, end: 20060110
  2. PACLITAXEL [Suspect]
     Dosage: 310 MG Q3W IV
     Route: 042
     Dates: start: 20051221, end: 20060110
  3. ANHYDROUS DEXTROSE [Suspect]
     Dosage: 500 ML Q3W IV
     Route: 042
     Dates: start: 20051221, end: 20060110
  4. SODIUM CHLORIDE [Suspect]
     Dosage: 500 ML Q3W IV
     Route: 042
     Dates: start: 20051221, end: 20060110

REACTIONS (2)
  - MYOCARDIAL INFARCTION [None]
  - NO REACTION ON PREVIOUS EXPOSURE TO DRUG [None]
